FAERS Safety Report 17925318 (Version 2)
Quarter: 2020Q2

REPORT INFORMATION
  Report Type: Spontaneous
  Country: US (occurrence: US)
  Receive Date: 20200622
  Receipt Date: 20200630
  Transmission Date: 20200714
  Serious: Yes (Hospitalization)
  Sender: FDA-Public Use
  Company Number: US-SEATTLE GENETICS-2020SGN02520

PATIENT
  Sex: Female

DRUGS (4)
  1. TUKYSA [Suspect]
     Active Substance: TUCATINIB
     Indication: BREAST CANCER FEMALE
     Dosage: UNK UNK, BID
  2. TUKYSA [Suspect]
     Active Substance: TUCATINIB
     Indication: COLON CANCER
  3. HERCEPTIN [Concomitant]
     Active Substance: TRASTUZUMAB
     Indication: BREAST CANCER FEMALE
  4. CAPECITABINE. [Concomitant]
     Active Substance: CAPECITABINE
     Indication: BREAST CANCER FEMALE
     Dosage: 3 DF, BID

REACTIONS (8)
  - Haemorrhage [Unknown]
  - Gait inability [Unknown]
  - Depressed mood [Unknown]
  - Hyperaesthesia [Unknown]
  - Feeding disorder [Unknown]
  - Stomatitis [Unknown]
  - Off label use [Unknown]
  - Erythema [Unknown]
